FAERS Safety Report 10216113 (Version 1)
Quarter: 2014Q2

REPORT INFORMATION
  Report Type: Spontaneous
  Country: US (occurrence: None)
  Receive Date: 20140603
  Receipt Date: 20140603
  Transmission Date: 20141212
  Serious: Yes (Hospitalization)
  Sender: FDA-Public Use
  Company Number: None

PATIENT
  Age: 47 Year
  Sex: Male
  Weight: 122.6 kg

DRUGS (1)
  1. NAFCILLIN [Suspect]
     Indication: STAPHYLOCOCCAL BACTERAEMIA
     Dosage: 2 GM, OTHER, IV
     Route: 042
     Dates: start: 20140320, end: 20140325

REACTIONS (4)
  - Rash morbilliform [None]
  - Pruritus [None]
  - Feeling hot [None]
  - Hypersensitivity vasculitis [None]
